FAERS Safety Report 10267720 (Version 1)
Quarter: 2014Q2

REPORT INFORMATION
  Report Type: Spontaneous
  Country: US (occurrence: US)
  Receive Date: 20140630
  Receipt Date: 20140630
  Transmission Date: 20141212
  Serious: No
  Sender: FDA-Public Use
  Company Number: US-BAYER-2014-092542

PATIENT
  Age: 56 Year
  Sex: Female
  Weight: 85 kg

DRUGS (3)
  1. ALEVE CAPLET [Suspect]
     Route: 048
  2. DILTIAZEM [Concomitant]
  3. DILTIAZEM [Concomitant]
     Dosage: 3 DF, ONCE
     Dates: start: 20140616, end: 20140616

REACTIONS (2)
  - Abdominal pain upper [Recovered/Resolved]
  - Off label use [None]
